FAERS Safety Report 8492444-6 (Version None)
Quarter: 2012Q3

REPORT INFORMATION
  Report Type: 
  Country: None (occurrence: None)
  Receive Date: 20120706
  Receipt Date: 20120628
  Transmission Date: 20120928
  Serious: Yes (Death, Other)
  Sender: FDA-Public Use
  Company Number: JP-PFIZER INC-2012153423

PATIENT
  Age: 87 Year
  Sex: Female

DRUGS (1)
  1. FOSPHENYTOIN SODIUM [Suspect]
     Indication: CONVULSION
     Dosage: 750 MG, 1X/DAY
     Route: 042
     Dates: start: 20120410, end: 20120411

REACTIONS (1)
  - RIGHT VENTRICULAR FAILURE [None]
